FAERS Safety Report 7061549-9 (Version None)
Quarter: 2010Q4

REPORT INFORMATION
  Report Type: 
  Country: None (occurrence: None)
  Receive Date: 20101026
  Receipt Date: 20101022
  Transmission Date: 20110411
  Serious: Yes (Life-Threatening, Hospitalization, Other)
  Sender: FDA-Public Use
  Company Number: CO-SANOFI-AVENTIS-2010SA063237

PATIENT
  Age: 54 Year
  Sex: Female

DRUGS (6)
  1. TAXOTERE [Suspect]
     Route: 042
     Dates: start: 20101015, end: 20101015
  2. DEXAMETHASONE [Concomitant]
     Route: 040
     Dates: start: 20101015, end: 20101015
  3. RANITIDINE [Concomitant]
     Route: 040
     Dates: start: 20101015, end: 20101015
  4. ONDANSETRON [Concomitant]
     Route: 040
     Dates: start: 20101015, end: 20101015
  5. DIPHENHYDRAMINE HCL [Concomitant]
     Route: 048
     Dates: start: 20101015, end: 20101015
  6. OMEPRAZOLE [Concomitant]
     Route: 048

REACTIONS (3)
  - CARDIO-RESPIRATORY ARREST [None]
  - CHEST DISCOMFORT [None]
  - DIZZINESS [None]
